FAERS Safety Report 13998484 (Version 1)
Quarter: 2017Q3

REPORT INFORMATION
  Report Type: Spontaneous
  Country: US (occurrence: US)
  Receive Date: 20170922
  Receipt Date: 20170922
  Transmission Date: 20171128
  Serious: No
  Sender: FDA-Public Use
  Company Number: US-WELLSTAT THERAPEUTICS CORPORATION-2027304

PATIENT
  Age: 4 Year
  Sex: Male
  Weight: 19.5 kg

DRUGS (1)
  1. XURIDEN [Suspect]
     Active Substance: URIDINE TRIACETATE
     Indication: GENE MUTATION
     Route: 065

REACTIONS (1)
  - Off label use [Unknown]

NARRATIVE: CASE EVENT DATE: 20170607
